FAERS Safety Report 18533659 (Version 5)
Quarter: 2021Q1

REPORT INFORMATION
  Report Type: Spontaneous
  Country: FR (occurrence: FR)
  Receive Date: 20201123
  Receipt Date: 20210118
  Transmission Date: 20210419
  Serious: Yes (Life-Threatening, Hospitalization, Other)
  Sender: FDA-Public Use
  Company Number: FR-PFIZER INC-2020460266

PATIENT
  Age: 68 Year
  Sex: Male
  Weight: 75 kg

DRUGS (9)
  1. CETUXIMAB. [Suspect]
     Active Substance: CETUXIMAB
     Indication: COLORECTAL CANCER METASTATIC
     Dosage: 760 MG, UNK
     Route: 042
     Dates: start: 20201106, end: 20201110
  2. DOLIPRANE [Concomitant]
     Active Substance: ACETAMINOPHEN
     Indication: PAIN
     Dosage: 1000 MG, QID (4/DAY) IF PAIN
     Route: 065
     Dates: end: 20201110
  3. CETUXIMAB. [Suspect]
     Active Substance: CETUXIMAB
     Indication: METASTATIC NEOPLASM
  4. TRAMADOL. [Concomitant]
     Active Substance: TRAMADOL
     Dosage: 150 MG, BID (2/DAY)
     Route: 065
     Dates: end: 20201110
  5. TARDYFERON [Concomitant]
     Active Substance: FERROUS SULFATE
     Dosage: 80 MG, BID (2/DAY)
     Route: 065
     Dates: end: 20201110
  6. INEGY [Concomitant]
     Active Substance: EZETIMIBE\SIMVASTATIN
     Dosage: QD (1/DAY)
     Route: 065
     Dates: end: 20201110
  7. GLUCOPHAGE [Concomitant]
     Active Substance: METFORMIN HYDROCHLORIDE
     Dosage: 1000 MG, BID (2/DAY)
     Route: 065
     Dates: end: 20201110
  8. BRAFTOVI [Suspect]
     Active Substance: ENCORAFENIB
     Indication: COLON CANCER METASTATIC
     Dosage: 300 MG, DAILY
     Route: 048
     Dates: start: 20201106, end: 20201110
  9. COAPROVEL [Concomitant]
     Active Substance: HYDROCHLOROTHIAZIDE\IRBESARTAN
     Dosage: QD (1/DAY)
     Route: 065
     Dates: end: 20201110

REACTIONS (4)
  - Acute kidney injury [Recovered/Resolved]
  - Asthenia [Unknown]
  - Vomiting [Unknown]
  - Back pain [Unknown]

NARRATIVE: CASE EVENT DATE: 20201110
